FAERS Safety Report 6819872-6 (Version None)
Quarter: 2010Q3

REPORT INFORMATION
  Report Type: 
  Country: None (occurrence: None)
  Receive Date: 20100707
  Receipt Date: 20100625
  Transmission Date: 20110219
  Serious: Yes (Hospitalization)
  Sender: FDA-Public Use
  Company Number: DE-ELI_LILLY_AND_COMPANY-DE201006007025

PATIENT
  Sex: Female

DRUGS (5)
  1. FORTEO [Suspect]
     Dosage: UNK, DAILY (1/D)
     Route: 058
     Dates: start: 20100301, end: 20100622
  2. METOPROLOL [Concomitant]
     Dosage: UNK, UNKNOWN
  3. METHOTREXAT [Concomitant]
     Dosage: UNK, UNKNOWN
  4. IDEOS [Concomitant]
     Dosage: UNK, UNKNOWN
  5. DEKRISTOL [Concomitant]
     Dosage: UNK, UNKNOWN

REACTIONS (2)
  - PERICARDIAL EFFUSION [None]
  - PULMONARY OEDEMA [None]
